FAERS Safety Report 21346531 (Version 1)
Quarter: 2022Q3

REPORT INFORMATION
  Report Type: Spontaneous
  Country: AU (occurrence: AU)
  Receive Date: 20220917
  Receipt Date: 20220917
  Transmission Date: 20221027
  Serious: Yes (Hospitalization)
  Sender: FDA-Public Use
  Company Number: AU-JNJFOC-20220917443

PATIENT
  Sex: Male

DRUGS (1)
  1. SPRAVATO [Suspect]
     Active Substance: ESKETAMINE
     Indication: Product used for unknown indication
     Dosage: THE PATIENT HAD COMPLETED WEEK 5 SPRAVATO  TREATMENT.
     Dates: end: 20220901

REACTIONS (2)
  - Seizure [Unknown]
  - Memory impairment [Unknown]
